FAERS Safety Report 14294059 (Version 2)
Quarter: 2017Q4

REPORT INFORMATION
  Report Type: Spontaneous
  Country: IT (occurrence: IT)
  Receive Date: 20171217
  Receipt Date: 20171228
  Transmission Date: 20180321
  Serious: Yes (Other)
  Sender: FDA-Public Use
  Company Number: IT-CIPLA LTD.-2017IT25733

PATIENT

DRUGS (7)
  1. LORAZEPAM. [Interacting]
     Active Substance: LORAZEPAM
     Dosage: 75 MG, UNK (IN TOTAL)
     Route: 048
     Dates: start: 20170905, end: 20170905
  2. LORMETAZEPAM [Interacting]
     Active Substance: LORMETAZEPAM
     Indication: INTENTIONAL SELF-INJURY
     Dosage: 10 MG, UNK (IN TOTAL)
     Route: 048
     Dates: start: 20170905, end: 20170905
  3. TRIAZOLAM. [Interacting]
     Active Substance: TRIAZOLAM
     Indication: INTENTIONAL SELF-INJURY
     Dosage: 2.5 MG, UNK (IN TOTAL)
     Route: 048
     Dates: start: 20170905, end: 20170905
  4. DEPAKIN 200 MG/ML SOLUZIONE ORALE [Concomitant]
     Dosage: UNK
     Route: 048
  5. VENLAFAXINE [Interacting]
     Active Substance: VENLAFAXINE HYDROCHLORIDE
     Indication: INTENTIONAL SELF-INJURY
     Dosage: 150 MG, UNK (IN TOTAL)
     Route: 048
     Dates: start: 20170905, end: 20170905
  6. ALCOHOL. [Interacting]
     Active Substance: ALCOHOL
     Indication: PRODUCT USED FOR UNKNOWN INDICATION
     Dosage: UNK
     Route: 048
     Dates: start: 20170905
  7. RISPERIDONE. [Suspect]
     Active Substance: RISPERIDONE
     Indication: INTENTIONAL SELF-INJURY
     Dosage: 75 ML, UNK (IN TOTAL)
     Route: 048
     Dates: start: 20170905, end: 20170905

REACTIONS (10)
  - Intentional self-injury [Unknown]
  - Attention deficit/hyperactivity disorder [Unknown]
  - Overdose [Unknown]
  - Loss of consciousness [Unknown]
  - Intellectual disability [Unknown]
  - Intentional product misuse [Unknown]
  - Sopor [Unknown]
  - Drug abuse [Unknown]
  - Alcohol interaction [Unknown]
  - Concomitant disease aggravated [Unknown]

NARRATIVE: CASE EVENT DATE: 20170905
